FAERS Safety Report 14862692 (Version 3)
Quarter: 2018Q2

REPORT INFORMATION
  Report Type: Not Available
  Country: US (occurrence: US)
  Receive Date: 20180508
  Receipt Date: 20180606
  Transmission Date: 20180711
  Serious: No
  Sender: FDA-Public Use
  Company Number: US-NEUROCRINE BIOSCIENCES INC.-2018NBI01313

PATIENT
  Sex: Male

DRUGS (11)
  1. AMLODIPINE [Concomitant]
     Active Substance: AMLODIPINE BESYLATE
  2. CLONIDINE. [Concomitant]
     Active Substance: CLONIDINE
  3. METOPROLOL. [Concomitant]
     Active Substance: METOPROLOL
  4. TRILEPTAL [Concomitant]
     Active Substance: OXCARBAZEPINE
  5. ASPIRIN. [Concomitant]
     Active Substance: ASPIRIN
  6. FENOFIBRATE. [Concomitant]
     Active Substance: FENOFIBRATE
  7. INGREZZA [Suspect]
     Active Substance: VALBENAZINE
     Indication: PRODUCT USED FOR UNKNOWN INDICATION
     Dosage: IN THE EVENING
     Route: 048
     Dates: start: 2018
  8. INSULIN [Concomitant]
     Active Substance: INSULIN NOS
     Indication: DIABETES MELLITUS
  9. FOLIC ACID. [Concomitant]
     Active Substance: FOLIC ACID
  10. ISOSORBIDE. [Concomitant]
     Active Substance: ISOSORBIDE
  11. LITHIUM. [Concomitant]
     Active Substance: LITHIUM

REACTIONS (4)
  - Asthenia [Not Recovered/Not Resolved]
  - Lethargy [Not Recovered/Not Resolved]
  - Dyskinesia [Unknown]
  - Malaise [Unknown]

NARRATIVE: CASE EVENT DATE: 2018
